FAERS Safety Report 9818349 (Version 2)
Quarter: 2014Q1

REPORT INFORMATION
  Report Type: Spontaneous
  Country: IE (occurrence: IE)
  Receive Date: 20140115
  Receipt Date: 20140206
  Transmission Date: 20141002
  Serious: Yes (Hospitalization)
  Sender: FDA-Public Use
  Company Number: PHFR2014IE000660

PATIENT
  Age: 24 Year
  Sex: Male

DRUGS (6)
  1. CLOZARIL [Suspect]
     Indication: SCHIZOPHRENIA, PARANOID TYPE
     Dosage: UNK
     Route: 048
     Dates: start: 20120705
  2. CLOZARIL [Suspect]
     Dosage: 125 MG, DAILY
     Route: 048
  3. CLOZARIL [Suspect]
     Dosage: 200 MG, DAILY
     Route: 048
  4. LAMOTRIGINE [Concomitant]
     Dosage: 25 MG, QD
     Route: 048
  5. LAMOTRIGINE [Concomitant]
     Dosage: 50 MG, QD
     Route: 048
  6. OMEPRAZOLE [Concomitant]
     Dosage: 40 MG, BID
     Route: 048

REACTIONS (6)
  - Nervous system disorder [Recovering/Resolving]
  - Hypoaesthesia [Recovered/Resolved]
  - Muscular weakness [Recovered/Resolved]
  - Substance abuse [Unknown]
  - Alcohol abuse [Recovered/Resolved]
  - Circulatory collapse [Recovered/Resolved]
